FAERS Safety Report 5836844-9 (Version None)
Quarter: 2008Q3

REPORT INFORMATION
  Report Type: 
  Country: None (occurrence: None)
  Receive Date: 20080807
  Receipt Date: 20080806
  Transmission Date: 20090109
  Serious: Yes (Hospitalization)
  Sender: FDA-Public Use
  Company Number: B0519167A

PATIENT
  Age: 74 Year
  Sex: Female
  Weight: 60 kg

DRUGS (4)
  1. DUOMOX [Suspect]
     Indication: VOCAL CORD INFLAMMATION
     Route: 048
     Dates: start: 20080218, end: 20080222
  2. TERTENSIF [Concomitant]
     Indication: HYPERTENSION
     Dosage: 1TAB PER DAY
     Route: 048
  3. BISOCARD [Concomitant]
     Indication: HYPERTENSION
     Dosage: 5MG PER DAY
     Route: 048
  4. ACARD [Concomitant]
     Dosage: 75MG PER DAY
     Route: 048

REACTIONS (2)
  - DERMATITIS ALLERGIC [None]
  - RASH PAPULAR [None]
